FAERS Safety Report 6034470-2 (Version None)
Quarter: 2009Q1

REPORT INFORMATION
  Report Type: 
  Country: None (occurrence: None)
  Receive Date: 20090109
  Receipt Date: 20090109
  Transmission Date: 20090719
  Serious: Yes (Hospitalization)
  Sender: FDA-Public Use
  Company Number: None

PATIENT
  Age: 19 Year
  Sex: Male
  Weight: 77.3 kg

DRUGS (1)
  1. EXJADE [Suspect]
     Indication: IRON OVERLOAD
     Dosage: 1500 MG DAILY PO
     Route: 048
     Dates: start: 20060501

REACTIONS (6)
  - BLINDNESS UNILATERAL [None]
  - CHEST PAIN [None]
  - DRUG TOXICITY [None]
  - DYSPNOEA [None]
  - NEPHROTIC SYNDROME [None]
  - VISUAL ACUITY REDUCED [None]
